FAERS Safety Report 24218641 (Version 1)
Quarter: 2024Q3

REPORT INFORMATION
  Report Type: Report from Study
  Country: US (occurrence: US)
  Receive Date: 20240816
  Receipt Date: 20240816
  Transmission Date: 20241017
  Serious: Yes (Hospitalization, Other)
  Sender: ABBVIE
  Company Number: US-ABBVIE-5881315

PATIENT
  Age: 62 Year
  Sex: Male

DRUGS (3)
  1. SKYRIZI [Suspect]
     Active Substance: RISANKIZUMAB-RZAA
     Indication: Psoriasis
     Dosage: STRENGTH: 150MG/ML, WEEK 0
     Route: 058
     Dates: start: 20230609, end: 20230609
  2. SKYRIZI [Suspect]
     Active Substance: RISANKIZUMAB-RZAA
     Dosage: STRENGTH: 150MG/ML, WEEK 4
     Route: 058
     Dates: start: 20230707, end: 20230707
  3. SKYRIZI [Suspect]
     Active Substance: RISANKIZUMAB-RZAA
     Dosage: STRENGTH: 150MG/ML,  THEN EVERY 12 WEEKS THEREAFTER, FIRST ADMIN DATE: 2023
     Route: 058

REACTIONS (2)
  - Coronary arterial stent insertion [Unknown]
  - Arthropathy [Recovering/Resolving]

NARRATIVE: CASE EVENT DATE: 20230901
